FAERS Safety Report 6166465-2 (Version None)
Quarter: 2009Q2

REPORT INFORMATION
  Report Type: 
  Country: None (occurrence: None)
  Receive Date: 20090424
  Receipt Date: 20090416
  Transmission Date: 20091009
  Serious: Yes (Other)
  Sender: FDA-Public Use
  Company Number: US-PFIZER INC-2004112638

PATIENT
  Sex: Female

DRUGS (2)
  1. PROVERA [Suspect]
     Route: 065
  2. PREMPRO [Suspect]
     Indication: HORMONE REPLACEMENT THERAPY
     Dosage: 2.5 MG, UNK
     Route: 065
     Dates: start: 19960101, end: 20000101

REACTIONS (1)
  - BREAST CANCER FEMALE [None]
